FAERS Safety Report 7752265-6 (Version None)
Quarter: 2011Q3

REPORT INFORMATION
  Report Type: 
  Country: None (occurrence: None)
  Receive Date: 20110915
  Receipt Date: 20110913
  Transmission Date: 20111222
  Serious: Yes (Life-Threatening)
  Sender: FDA-Public Use
  Company Number: FR-B.I. PHARMACEUTICALS,INC./RIDGEFIELD-2011-FF-00838FF

PATIENT
  Sex: Female
  Weight: 68 kg

DRUGS (3)
  1. ACETAMINOPHEN [Concomitant]
     Indication: PAIN
     Dosage: 3 G
     Route: 042
  2. PRADAXA [Suspect]
     Dosage: 150 MG
     Route: 048
  3. TRAMADOL HCL [Concomitant]
     Indication: PAIN
     Dosage: 300 MG
     Route: 042

REACTIONS (1)
  - VENOUS THROMBOSIS LIMB [None]
